FAERS Safety Report 8029828-6 (Version None)
Quarter: 2011Q4

REPORT INFORMATION
  Report Type: 
  Country: None (occurrence: None)
  Receive Date: 20111130
  Receipt Date: 20110720
  Transmission Date: 20120403
  Serious: Yes (Other)
  Sender: FDA-Public Use
  Company Number: US200910005556

PATIENT
  Sex: Male

DRUGS (30)
  1. SIMVASTATIN [Concomitant]
  2. NIASPAN [Concomitant]
  3. LYRICA [Concomitant]
  4. ROZEREM [Concomitant]
  5. TYLENOL /00020001/ (PARACETAMOL) [Concomitant]
  6. METAGLIP (GLIPIZIDE, METFORMIN HYDROCHLORIDE) [Concomitant]
  7. JANUVIA [Concomitant]
  8. NOVOLOG [Concomitant]
  9. FELODIPINE [Concomitant]
  10. BYETTA [Suspect]
     Dosage: 10 UG, BID
     Dates: end: 20081201
  11. TOPROL-XL [Concomitant]
  12. CYMBALTA [Concomitant]
  13. RINOCORT (BECLOMETASONE DIPROPIONATE) [Concomitant]
  14. TIZANIDINE HCL [Concomitant]
  15. EXENATIDE, DISPOSABLE DEVICE (EXENATIDE PEN ) PEN,DISPOSABLE [Concomitant]
  16. VYTORIN [Concomitant]
  17. PLAVIX [Concomitant]
  18. ENALAPRIL (ENALIPRIL) [Concomitant]
  19. LASIX [Concomitant]
  20. METOPROLOL TARTRATE [Concomitant]
  21. OXYCODONE AND ACETAMINOPHEN [Concomitant]
  22. BYETTA [Suspect]
     Dates: end: 20070410
  23. AVANDIA [Concomitant]
  24. POTASSIUM CHLORIDE [Concomitant]
  25. LANTUS [Concomitant]
  26. ISOSORBIDE MONONITRATE [Concomitant]
  27. REGLAN [Concomitant]
  28. SPIRIVA [Concomitant]
  29. PREVACID [Concomitant]
  30. NITROGLYCERIN [Concomitant]

REACTIONS (2)
  - OFF LABEL USE [None]
  - PANCREATITIS ACUTE [None]
